FAERS Safety Report 20322138 (Version 1)
Quarter: 2022Q1

REPORT INFORMATION
  Report Type: Spontaneous
  Country: FR (occurrence: FR)
  Receive Date: 20220111
  Receipt Date: 20220111
  Transmission Date: 20220423
  Serious: Yes (Other)
  Sender: FDA-Public Use
  Company Number: FR-SA-SAC20211109000890

PATIENT
  Age: 63 Year
  Sex: Female

DRUGS (16)
  1. CYTARABINE [Suspect]
     Active Substance: CYTARABINE
     Indication: Product used for unknown indication
     Dosage: INDUCTION II DAY 2
     Route: 065
     Dates: start: 20210123
  2. CYTARABINE [Suspect]
     Active Substance: CYTARABINE
     Dosage: INDUCTION I DAY 2
     Route: 065
     Dates: start: 20201216
  3. METHOTREXATE [Suspect]
     Active Substance: METHOTREXATE
     Indication: Product used for unknown indication
     Dosage: INDUCTION 1: DAY 2
     Route: 065
     Dates: start: 20201216, end: 20201216
  4. METHOTREXATE [Suspect]
     Active Substance: METHOTREXATE
     Dosage: INDUCTION II; DAY 2
     Route: 065
     Dates: start: 20210123, end: 20210123
  5. INOTUZUMAB OZOGAMICIN [Suspect]
     Active Substance: INOTUZUMAB OZOGAMICIN
     Indication: Product used for unknown indication
     Dosage: INDUCTION I; DAY 15
     Route: 065
     Dates: start: 20201229, end: 20201229
  6. INOTUZUMAB OZOGAMICIN [Suspect]
     Active Substance: INOTUZUMAB OZOGAMICIN
     Dosage: INDUCTION I; DAY 8
     Route: 065
     Dates: start: 20201222, end: 20201222
  7. INOTUZUMAB OZOGAMICIN [Suspect]
     Active Substance: INOTUZUMAB OZOGAMICIN
     Dosage: INDUCTION II; DAY 1
     Route: 065
     Dates: start: 20210122, end: 20210122
  8. INOTUZUMAB OZOGAMICIN [Suspect]
     Active Substance: INOTUZUMAB OZOGAMICIN
     Dosage: INDUCTION 1: DAY 1
     Route: 065
     Dates: start: 20201215, end: 20201215
  9. INOTUZUMAB OZOGAMICIN [Suspect]
     Active Substance: INOTUZUMAB OZOGAMICIN
     Dosage: INDUCTION II; DAY 8
     Route: 065
     Dates: start: 20210129, end: 20210129
  10. CYCLOPHOSPHAMIDE [Suspect]
     Active Substance: CYCLOPHOSPHAMIDE
     Indication: Product used for unknown indication
     Dosage: INDUCTION 2; DAY 1
     Route: 065
     Dates: start: 20210122, end: 20210122
  11. CYCLOPHOSPHAMIDE [Suspect]
     Active Substance: CYCLOPHOSPHAMIDE
     Dosage: INDUCTION II; DAY 3
     Route: 065
     Dates: start: 20210124, end: 20210124
  12. CYCLOPHOSPHAMIDE [Suspect]
     Active Substance: CYCLOPHOSPHAMIDE
     Dosage: INDUCTION II; DAY 2
     Route: 065
     Dates: start: 20210123, end: 20210123
  13. VINCRISTINE SULFATE [Suspect]
     Active Substance: VINCRISTINE SULFATE
     Indication: Product used for unknown indication
     Dosage: INDUCTION I; DAY 8
     Route: 065
     Dates: start: 20201222, end: 20201222
  14. VINCRISTINE SULFATE [Suspect]
     Active Substance: VINCRISTINE SULFATE
     Dosage: INDUCTION I; DAY 22
     Route: 065
     Dates: start: 20210105, end: 20210105
  15. VINCRISTINE SULFATE [Suspect]
     Active Substance: VINCRISTINE SULFATE
     Dosage: INDUCRTION 1: DAY 1
     Route: 065
     Dates: start: 20201215, end: 20201215
  16. VINCRISTINE SULFATE [Suspect]
     Active Substance: VINCRISTINE SULFATE
     Dosage: INDUCTION I; DAY 15
     Route: 065
     Dates: start: 20201229, end: 20201229

REACTIONS (1)
  - Jugular vein thrombosis [Recovered/Resolved]
